FAERS Safety Report 5688472-6 (Version None)
Quarter: 2008Q1

REPORT INFORMATION
  Report Type: 
  Country: None (occurrence: None)
  Receive Date: 20080331
  Receipt Date: 20080321
  Transmission Date: 20080703
  Serious: Yes (Other)
  Sender: FDA-Public Use
  Company Number: US-BAYER-200817820NA

PATIENT
  Age: 17 Year
  Sex: Female

DRUGS (1)
  1. YAZ [Suspect]
     Indication: CONTRACEPTION
     Route: 048
     Dates: start: 20071201, end: 20080309

REACTIONS (5)
  - HEADACHE [None]
  - NAUSEA [None]
  - PRURITUS GENERALISED [None]
  - TREMOR [None]
  - UNEVALUABLE EVENT [None]
